FAERS Safety Report 20805586 (Version 4)
Quarter: 2022Q4

REPORT INFORMATION
  Report Type: Report from Study
  Country: US (occurrence: US)
  Receive Date: 20220510
  Receipt Date: 20221005
  Transmission Date: 20230113
  Serious: Yes (Other)
  Sender: FDA-Public Use
  Company Number: US-ABBVIE-22K-163-4387163-00

PATIENT
  Age: 62 Year
  Sex: Female

DRUGS (2)
  1. HUMIRA [Suspect]
     Active Substance: ADALIMUMAB
     Indication: Psoriasis
     Route: 058
     Dates: end: 20220328
  2. HUMIRA [Suspect]
     Active Substance: ADALIMUMAB
     Route: 058
     Dates: start: 20220516

REACTIONS (7)
  - Post procedural haemorrhage [Recovered/Resolved]
  - Knee operation [Recovering/Resolving]
  - Musculoskeletal stiffness [Recovering/Resolving]
  - Procedural haemorrhage [Recovered/Resolved]
  - Psoriasis [Recovered/Resolved]
  - Joint stiffness [Recovering/Resolving]
  - Fall [Unknown]

NARRATIVE: CASE EVENT DATE: 20220401
